FAERS Safety Report 11024799 (Version 1)
Quarter: 2020Q3

REPORT INFORMATION
  Report Type: Report from Study
  Country: FR (occurrence: None)
  Receive Date: 20150410
  Receipt Date: 20150410
  Transmission Date: 20201105
  Serious: Yes (Other)
  Sender: FDA-Public Use
  Company Number: 2015-07520

PATIENT
  Age: 46 Year
  Sex: Female

DRUGS (4)
  1. ULIPRISTAL ACETATE [Suspect]
     Active Substance: ULIPRISTAL ACETATE
     Indication: UTERINE LEIOMYOMA
     Dosage: 1 DF, DAILY, UNKNOWN
     Dates: start: 20140306, end: 20140606
  2. LAMICTAL [Concomitant]
     Active Substance: LAMOTRIGINE
  3. LUTERAN (CHLORMADINONE ACETATE) [Concomitant]
  4. TARYFERON (FERROUS SULFATE) [Concomitant]

REACTIONS (2)
  - Labelled drug-drug interaction medication error [None]
  - Bartholin^s cyst [None]
